FAERS Safety Report 16501039 (Version 1)
Quarter: 2019Q3

REPORT INFORMATION
  Report Type: Spontaneous
  Country: US (occurrence: US)
  Receive Date: 20190628
  Receipt Date: 20190628
  Transmission Date: 20191004
  Serious: Yes (Other)
  Sender: FDA-Public Use
  Company Number: None

PATIENT
  Age: 44 Year
  Sex: Male
  Weight: 64.35 kg

DRUGS (6)
  1. MODAFINIL 100MG TWICE A DAY [Concomitant]
  2. BACLOFEN 20MG TWICE A DAY [Concomitant]
  3. GABAPENTIN 300MG [Concomitant]
     Active Substance: GABAPENTIN
  4. DULOXETINE 30MG [Concomitant]
     Active Substance: DULOXETINE
  5. OCREVUS [Suspect]
     Active Substance: OCRELIZUMAB
     Indication: RELAPSING MULTIPLE SCLEROSIS
     Dosage: ?          OTHER FREQUENCY:EVERY 6 MONTHS;?
     Dates: start: 20171001
  6. PANTOPRAZOLE 40MG [Concomitant]
     Active Substance: PANTOPRAZOLE SODIUM

REACTIONS (2)
  - Acute sinusitis [None]
  - Infectious mononucleosis [None]
